FAERS Safety Report 6308036 (Version 3)
Quarter: 2014Q4

REPORT INFORMATION
  Report Type: Other
  Country: FR (occurrence: FR)
  Receive Date: 20070509
  Receipt Date: 20141017
  Transmission Date: 20150529
  Serious: Yes (Hospitalization, Other)
  Sender: FDA-Public Use
  Company Number: FR-BRISTOL-MYERS SQUIBB COMPANY-13771431

PATIENT
  Age: 43 Year
  Sex: Male

DRUGS (3)
  1. RISPERDAL [Suspect]
     Active Substance: RISPERIDONE
     Dates: start: 20040208, end: 20050716
  2. ABILIFY [Suspect]
     Active Substance: ARIPIPRAZOLE
     Indication: SCHIZOAFFECTIVE DISORDER
     Dosage: INCREASED TO 15/MG/D:07JUL05-20JUL05
     Route: 048
     Dates: start: 20050627, end: 20050720
  3. TERCIAN [Suspect]
     Active Substance: CYAMEMAZINE
     Dates: start: 20050623, end: 20050716

REACTIONS (6)
  - Atelectasis [Recovered/Resolved]
  - Keratitis [Recovered/Resolved]
  - Alanine aminotransferase increased [Recovered/Resolved]
  - Leukocytosis [Recovered/Resolved]
  - Eyelid function disorder [Recovered/Resolved]
  - Neuroleptic malignant syndrome [Recovered/Resolved]

NARRATIVE: CASE EVENT DATE: 20050718
